FAERS Safety Report 7547857-3 (Version None)
Quarter: 2011Q2

REPORT INFORMATION
  Report Type: 
  Country: None (occurrence: None)
  Receive Date: 20110615
  Receipt Date: 20110606
  Transmission Date: 20111010
  Serious: No
  Sender: FDA-Public Use
  Company Number: US-BIOGENIDEC-2010BI013125

PATIENT
  Sex: Female

DRUGS (26)
  1. MARIJUANA [Concomitant]
     Indication: SPINAL COLUMN STENOSIS
  2. NARCOTICS (NOS) [Concomitant]
     Indication: NECK PAIN
     Route: 048
  3. NARCOTICS (NOS) [Concomitant]
     Indication: TOBACCO USER
     Route: 048
  4. MARIJUANA [Concomitant]
     Indication: TOBACCO USER
  5. NARCOTICS (NOS) [Concomitant]
     Route: 048
  6. MARIJUANA [Concomitant]
     Indication: PAIN IN EXTREMITY
  7. NARCOTICS (NOS) [Concomitant]
     Indication: FOOT FRACTURE
     Route: 048
  8. MARIJUANA [Concomitant]
     Indication: BACK PAIN
  9. MARIJUANA [Concomitant]
     Indication: OEDEMA PERIPHERAL
  10. NARCOTICS (NOS) [Concomitant]
     Indication: HYPOAESTHESIA
     Route: 048
  11. NARCOTICS (NOS) [Concomitant]
     Indication: BACK PAIN
     Route: 048
  12. MARIJUANA [Concomitant]
     Indication: HYPOAESTHESIA
  13. MARIJUANA [Concomitant]
     Indication: FOOT FRACTURE
  14. MARIJUANA [Concomitant]
     Indication: CENTRAL NERVOUS SYSTEM LESION
  15. NARCOTICS (NOS) [Concomitant]
     Indication: CENTRAL NERVOUS SYSTEM LESION
     Route: 048
  16. MARIJUANA [Concomitant]
     Indication: NECK PAIN
  17. MARIJUANA [Concomitant]
     Indication: MULTIPLE SCLEROSIS RELAPSE
  18. NARCOTICS (NOS) [Concomitant]
     Indication: SPINAL COLUMN STENOSIS
     Route: 048
  19. NARCOTICS (NOS) [Concomitant]
     Indication: ARTHRITIS
     Route: 048
  20. MARIJUANA [Concomitant]
  21. MARIJUANA [Concomitant]
     Indication: INTERVERTEBRAL DISC PROTRUSION
  22. NARCOTICS (NOS) [Concomitant]
     Indication: PAIN IN EXTREMITY
     Route: 048
  23. NARCOTICS (NOS) [Concomitant]
     Indication: MULTIPLE SCLEROSIS RELAPSE
     Route: 048
  24. TYSABRI [Suspect]
     Indication: MULTIPLE SCLEROSIS
     Route: 042
     Dates: start: 20070122
  25. NARCOTICS (NOS) [Concomitant]
     Indication: INTERVERTEBRAL DISC PROTRUSION
     Route: 048
  26. NARCOTICS (NOS) [Concomitant]
     Indication: OEDEMA PERIPHERAL
     Route: 048

REACTIONS (15)
  - DYSSTASIA [None]
  - OEDEMA PERIPHERAL [None]
  - AMNESIA [None]
  - SUICIDAL IDEATION [None]
  - VITAMIN B COMPLEX DEFICIENCY [None]
  - PAIN IN EXTREMITY [None]
  - MEMORY IMPAIRMENT [None]
  - DEPRESSION [None]
  - BACK PAIN [None]
  - NECK PAIN [None]
  - HEADACHE [None]
  - MULTIPLE SCLEROSIS RELAPSE [None]
  - FATIGUE [None]
  - MIGRAINE [None]
  - ARTHRITIS [None]
